FAERS Safety Report 9306800 (Version 1)
Quarter: 2013Q1

REPORT INFORMATION
  Report Type: Spontaneous
  Country: JP (occurrence: None)
  Receive Date: 20130321
  Receipt Date: 20130321
  Transmission Date: 20140127
  Serious: Yes (Life-Threatening, Hospitalization)
  Sender: FDA-Public Use
  Company Number: TCI2013A01224

PATIENT
  Age: 81 Year
  Sex: Female

DRUGS (6)
  1. NESINA [Suspect]
     Indication: TYPE 2 DIABETES MELLITUS
     Route: 048
     Dates: start: 20111220
  2. BLOPRESS (CANDESARTAN CILEXETIL) [Concomitant]
  3. AMARYL (GLIMEPIRIDE) [Concomitant]
  4. MEVALOTIN (PRAVASTATIN SODIUM) [Concomitant]
  5. ACINON (NIZATIDINE) [Concomitant]
  6. ALOSENN (ACHILLEA MILLEFOLIUM, SENNA ALEXANDRINA LEAF, SENNA ALEXANDRINA FRUIT, TARAXACUM OFFICINALE, RUBIA TINCTORIUM ROOT TINCTURE) [Concomitant]

REACTIONS (1)
  - Oesophageal squamous cell carcinoma [None]
